FAERS Safety Report 15310327 (Version 1)
Quarter: 2018Q3

REPORT INFORMATION
  Report Type: Spontaneous
  Country: US (occurrence: US)
  Receive Date: 20180823
  Receipt Date: 20180823
  Transmission Date: 20181010
  Serious: Yes (Death, Other)
  Sender: FDA-Public Use
  Company Number: US-NOVOPROD-617244

PATIENT
  Age: 65 Year
  Sex: Male

DRUGS (1)
  1. NOVOLOG [Suspect]
     Active Substance: INSULIN ASPART
     Indication: PRODUCT USED FOR UNKNOWN INDICATION
     Dosage: UNK
     Route: 058
     Dates: start: 201804

REACTIONS (3)
  - Blood glucose decreased [Unknown]
  - Cardiac failure [Fatal]
  - Blood glucose increased [Unknown]

NARRATIVE: CASE EVENT DATE: 201804
